FAERS Safety Report 17849270 (Version 1)
Quarter: 2020Q2

REPORT INFORMATION
  Report Type: Spontaneous
  Country: US (occurrence: US)
  Receive Date: 20200601
  Receipt Date: 20200601
  Transmission Date: 20200714
  Serious: Yes (Death)
  Sender: FDA-Public Use
  Company Number: None

PATIENT
  Age: 80 Year
  Sex: Female
  Weight: 77 kg

DRUGS (10)
  1. PYRIDOSTIGMINE [Concomitant]
     Active Substance: PYRIDOSTIGMINE
  2. LOVENOX [Concomitant]
     Active Substance: ENOXAPARIN SODIUM
  3. LOSARTAN. [Concomitant]
     Active Substance: LOSARTAN
  4. REMDESIVIR (200 MG X 1 DOSE FOLLOWED BY 100 MG DAILY) [Suspect]
     Active Substance: REMDESIVIR
     Indication: COVID-19
     Dates: start: 20200528, end: 20200530
  5. ASPIRIN. [Concomitant]
     Active Substance: ASPIRIN
  6. METHYLPREDNISOLONE. [Concomitant]
     Active Substance: METHYLPREDNISOLONE
  7. IVIG [Concomitant]
     Active Substance: HUMAN IMMUNOGLOBULIN G
  8. PIPERACILLIN/TAZOBACTAM [Concomitant]
     Active Substance: PIPERACILLIN SODIUM\TAZOBACTAM SODIUM
  9. ATORVASTATIN [Concomitant]
     Active Substance: ATORVASTATIN
  10. CARVEDILOL. [Concomitant]
     Active Substance: CARVEDILOL

REACTIONS (1)
  - Death [None]

NARRATIVE: CASE EVENT DATE: 20200530
